APPROVED DRUG PRODUCT: BLUDIGO
Active Ingredient: INDIGOTINDISULFONATE SODIUM
Strength: 40MG/5ML (8MG/ML)
Dosage Form/Route: SOLUTION;INTRAVENOUS
Application: N216264 | Product #001
Applicant: PROVEPHARM SAS
Approved: Jul 8, 2022 | RLD: Yes | RS: Yes | Type: RX

PATENTS:
Patent 11845867 | Expires: Nov 25, 2036
Patent 10927258 | Expires: Dec 23, 2037
Patent 11499050 | Expires: Dec 23, 2037

EXCLUSIVITY:
Code: NCE | Date: Jul 8, 2027